FAERS Safety Report 7170632-9 (Version None)
Quarter: 2010Q4

REPORT INFORMATION
  Report Type: 
  Country: None (occurrence: None)
  Receive Date: 20101217
  Receipt Date: 20101210
  Transmission Date: 20110411
  Serious: Yes (Other)
  Sender: FDA-Public Use
  Company Number: A0900055A

PATIENT
  Age: 55 Year
  Sex: Male
  Weight: 167 kg

DRUGS (1)
  1. PROMACTA [Suspect]
     Indication: IDIOPATHIC THROMBOCYTOPENIC PURPURA
     Route: 048
     Dates: start: 20100108

REACTIONS (2)
  - DEEP VEIN THROMBOSIS [None]
  - LUNG NEOPLASM [None]
